FAERS Safety Report 5568774-4 (Version None)
Quarter: 2007Q4

REPORT INFORMATION
  Report Type: 
  Country: None (occurrence: None)
  Receive Date: 20071220
  Receipt Date: 20070102
  Transmission Date: 20080405
  Serious: No
  Sender: FDA-Public Use
  Company Number: A0633239A

PATIENT
  Age: 78 Year
  Sex: Male

DRUGS (6)
  1. AVODART [Suspect]
     Indication: BENIGN PROSTATIC HYPERPLASIA
     Dosage: .5MG TWICE PER DAY
     Route: 048
     Dates: start: 20040101
  2. CARDURA [Concomitant]
  3. METOPROLOL SUCCINATE [Concomitant]
  4. COZAAR [Concomitant]
  5. COUMADIN [Concomitant]
  6. DYAZIDE [Concomitant]

REACTIONS (1)
  - ERECTILE DYSFUNCTION [None]
